FAERS Safety Report 7617383-1 (Version None)
Quarter: 2011Q3

REPORT INFORMATION
  Report Type: 
  Country: None (occurrence: None)
  Receive Date: 20110718
  Receipt Date: 20110714
  Transmission Date: 20111222
  Serious: Yes (Other)
  Sender: FDA-Public Use
  Company Number: US-PFIZER INC-2011160175

PATIENT
  Age: 31 Year
  Sex: Female
  Weight: 62.585 kg

DRUGS (2)
  1. SERTRALINE [Concomitant]
     Indication: ANXIETY
     Dosage: UNK
  2. CHANTIX [Suspect]
     Indication: SMOKING CESSATION THERAPY
     Dosage: 0.5 MG, 1X/DAY
     Route: 048
     Dates: start: 20110709, end: 20110711

REACTIONS (3)
  - HEART RATE INCREASED [None]
  - ANXIETY [None]
  - HYPERHIDROSIS [None]
